FAERS Safety Report 19122536 (Version 1)
Quarter: 2021Q2

REPORT INFORMATION
  Report Type: Spontaneous
  Country: GB (occurrence: GB)
  Receive Date: 20210412
  Receipt Date: 20210412
  Transmission Date: 20210717
  Serious: Yes (Other)
  Sender: FDA-Public Use
  Company Number: GB-DRREDDYS-GER/UKI/21/0134065

PATIENT
  Age: 64 Year

DRUGS (1)
  1. SUMATRIPTAN. [Suspect]
     Active Substance: SUMATRIPTAN
     Indication: MIGRAINE
     Dosage: 25 MG

REACTIONS (4)
  - Myalgia [Unknown]
  - Intentional product misuse [Unknown]
  - Muscle strain [Unknown]
  - Drug effective for unapproved indication [Unknown]
